FAERS Safety Report 16724771 (Version 1)
Quarter: 2019Q3

REPORT INFORMATION
  Report Type: Spontaneous
  Country: US (occurrence: US)
  Receive Date: 20190703
  Receipt Date: 20190703
  Transmission Date: 20191005
  Serious: Yes (Other)
  Sender: FDA-Public Use
  Company Number: None

PATIENT
  Age: 72 Year
  Sex: Female

DRUGS (18)
  1. FUROSEMIDE. [Concomitant]
     Active Substance: FUROSEMIDE
  2. OLANZAPINE. [Concomitant]
     Active Substance: OLANZAPINE
  3. TRIAMCINOLONE TOP OINT [Concomitant]
  4. ALVEDO HFA [Concomitant]
  5. MVI W MINERALS [Concomitant]
  6. SIMVASTATIN. [Concomitant]
     Active Substance: SIMVASTATIN
  7. TRAZODONE [Concomitant]
     Active Substance: TRAZODONE HYDROCHLORIDE
  8. SILDENAFIL. [Concomitant]
     Active Substance: SILDENAFIL
  9. VITAMIN D3 [Concomitant]
     Active Substance: CHOLECALCIFEROL
  10. BISACODYL. [Concomitant]
     Active Substance: BISACODYL
  11. OXYGEN SUPPLEMENTAL [Concomitant]
     Active Substance: OXYGEN
  12. MAGNESIUM OXIDE. [Concomitant]
     Active Substance: MAGNESIUM OXIDE
  13. ONDANSETRON [Concomitant]
     Active Substance: ONDANSETRON
  14. AMBRISENTAN [Suspect]
     Active Substance: AMBRISENTAN
     Indication: PULMONARY ARTERIAL HYPERTENSION
     Route: 048
     Dates: start: 201412
  15. WARFARIN [Concomitant]
     Active Substance: WARFARIN
  16. VENTOLIN HFA [Concomitant]
     Active Substance: ALBUTEROL SULFATE
  17. K-LAB [Concomitant]
  18. FLUOXETINE [Concomitant]
     Active Substance: FLUOXETINE HYDROCHLORIDE

REACTIONS (2)
  - Procedural complication [None]
  - Adenocarcinoma pancreas [None]

NARRATIVE: CASE EVENT DATE: 20190626
